FAERS Safety Report 21594055 (Version 2)
Quarter: 2025Q1

REPORT INFORMATION
  Report Type: Spontaneous
  Country: US (occurrence: US)
  Receive Date: 20221115
  Receipt Date: 20250205
  Transmission Date: 20250409
  Serious: Yes (Hospitalization, Other)
  Sender: NOVO NORDISK
  Company Number: US-NOVOPROD-978110

PATIENT
  Age: 83 Year
  Sex: Female

DRUGS (1)
  1. LEVEMIR [Suspect]
     Active Substance: INSULIN DETEMIR
     Indication: Product used for unknown indication
     Route: 058
     Dates: start: 2006

REACTIONS (10)
  - Knee arthroplasty [Unknown]
  - Nail operation [Unknown]
  - Hysterectomy [Unknown]
  - Cholecystectomy [Unknown]
  - Recurrent cancer [Unknown]
  - Cardiac failure congestive [Unknown]
  - Hypoacusis [Unknown]
  - Mental disorder [Unknown]
  - Hunger [Unknown]
  - Visual impairment [Unknown]
